FAERS Safety Report 12040741 (Version 1)
Quarter: 2016Q1

REPORT INFORMATION
  Report Type: Report from Study
  Country: US (occurrence: US)
  Receive Date: 20160208
  Receipt Date: 20160208
  Transmission Date: 20160526
  Serious: No
  Sender: FDA-Public Use
  Company Number: US-ABBVIE-15P-163-1338860-00

PATIENT
  Sex: Female

DRUGS (1)
  1. HUMIRA [Suspect]
     Active Substance: ADALIMUMAB
     Indication: CROHN^S DISEASE
     Route: 065
     Dates: end: 201501

REACTIONS (6)
  - Dizziness [Unknown]
  - Stoma site abscess [Not Recovered/Not Resolved]
  - Migraine [Unknown]
  - Vertigo [Unknown]
  - Chronic sinusitis [Unknown]
  - Drug ineffective [Not Recovered/Not Resolved]
